FAERS Safety Report 22182561 (Version 2)
Quarter: 2023Q2

REPORT INFORMATION
  Report Type: Report from Study
  Country: CA (occurrence: CA)
  Receive Date: 20230406
  Receipt Date: 20230411
  Transmission Date: 20230722
  Serious: Yes (Hospitalization)
  Sender: FDA-Public Use
  Company Number: CA-MYLANLABS-2022M1131663

PATIENT
  Age: 19 Year
  Sex: Female

DRUGS (2)
  1. HULIO [Suspect]
     Active Substance: ADALIMUMAB-FKJP
     Indication: Crohn^s disease
     Dosage: 40 MILLIGRAM, QW, (WEEKLY)
     Route: 058
     Dates: start: 20211013
  2. HULIO [Suspect]
     Active Substance: ADALIMUMAB-FKJP
     Dosage: 40 MILLIGRAM
     Route: 058
     Dates: start: 20230318

REACTIONS (10)
  - Hospitalisation [Unknown]
  - Mental disorder [Unknown]
  - Nasal congestion [Unknown]
  - Inflammation [Recovering/Resolving]
  - Headache [Unknown]
  - Influenza like illness [Unknown]
  - Cough [Unknown]
  - Nausea [Unknown]
  - Drug ineffective [Unknown]
  - Product dose omission issue [Unknown]

NARRATIVE: CASE EVENT DATE: 20230318
